FAERS Safety Report 15353464 (Version 1)
Quarter: 2018Q3

REPORT INFORMATION
  Report Type: Spontaneous
  Country: FR (occurrence: FR)
  Receive Date: 20180905
  Receipt Date: 20180905
  Transmission Date: 20181010
  Serious: Yes (Hospitalization)
  Sender: FDA-Public Use
  Company Number: FR-PFIZER INC-2018353452

PATIENT
  Age: 78 Year
  Sex: Male

DRUGS (14)
  1. FOLIC ACID. [Concomitant]
     Active Substance: FOLIC ACID
  2. TRAMADOL CT [Concomitant]
  3. SOLUPRED [PREDNISOLONE METASULFOBENZOATE SODIUM] [Concomitant]
  4. PARACETAMOL [Concomitant]
     Active Substance: ACETAMINOPHEN
  5. ALIMTA [Suspect]
     Active Substance: PEMETREXED DISODIUM
     Indication: LUNG ADENOCARCINOMA
     Dosage: 805 MG, SINGLE
     Route: 041
     Dates: start: 20180228
  6. PHOSPHORUS [Concomitant]
     Active Substance: PHOSPHORUS
  7. NORMACOL [STERCULIA URENS GUM] [Concomitant]
  8. AVODART [Concomitant]
     Active Substance: DUTASTERIDE
  9. GRANOCYTE [Suspect]
     Active Substance: LENOGRASTIM
     Indication: NEUTROPENIA
     Dosage: 33 MILLION IU, SINGLE
     Route: 042
     Dates: start: 20180323
  10. ATARAX [HYDROXYZINE] [Concomitant]
  11. MACROGOL [Concomitant]
     Active Substance: POLYETHYLENE GLYCOLS
  12. UROREC [Concomitant]
     Active Substance: SILODOSIN
  13. CARBOPLATINE HOSPIRA [Suspect]
     Active Substance: CARBOPLATIN
     Indication: LUNG ADENOCARCINOMA
     Dosage: 426 MG, SINGLE
     Route: 041
     Dates: start: 20180228
  14. FUROSEMIDE. [Concomitant]
     Active Substance: FUROSEMIDE

REACTIONS (1)
  - Weber-Christian disease [Not Recovered/Not Resolved]

NARRATIVE: CASE EVENT DATE: 20180607
